FAERS Safety Report 4856297-7 (Version None)
Quarter: 2005Q4

REPORT INFORMATION
  Report Type: 
  Country: None (occurrence: None)
  Receive Date: 20051215
  Receipt Date: 20051206
  Transmission Date: 20060501
  Serious: Yes (Hospitalization, Other)
  Sender: FDA-Public Use
  Company Number: 2005164328

PATIENT
  Age: 68 Year
  Sex: Male

DRUGS (6)
  1. LIPITOR [Suspect]
     Indication: BLOOD CHOLESTEROL INCREASED
     Dosage: 20 MG (20 MG, 1 IN 1 D), ORAL
     Route: 048
     Dates: start: 20051201, end: 20051201
  2. INSULIN [Concomitant]
  3. ALL OTHER THERAPEUTIC PRODUCTS (ALL OTHER THERAPEUTIC PRODUCTS) [Concomitant]
  4. BETA BLOCKING AGENTS (BETA BLOCKING AGENTS) [Concomitant]
  5. RENIN-ANGIOTENSIN SYSTEM, AGENTS ACTING ON (RENIN-ANGIOTENSIN SYSTEM, [Concomitant]
  6. DIURETICS (DIURETICS) [Concomitant]

REACTIONS (6)
  - ANURIA [None]
  - BLOOD CREATINE PHOSPHOKINASE INCREASED [None]
  - BLOOD CREATININE INCREASED [None]
  - EJECTION FRACTION DECREASED [None]
  - GENERAL PHYSICAL HEALTH DETERIORATION [None]
  - HAEMOGLOBIN URINE PRESENT [None]
